FAERS Safety Report 23312591 (Version 2)
Quarter: 2024Q1

REPORT INFORMATION
  Report Type: Report from Study
  Country: US (occurrence: None)
  Receive Date: 20231219
  Receipt Date: 20240214
  Transmission Date: 20240410
  Serious: Yes (Hospitalization)
  Sender: FDA-Public Use
  Company Number: 2023A285158

PATIENT
  Sex: Male
  Weight: 64.9 kg

DRUGS (8)
  1. CALQUENCE [Suspect]
     Active Substance: ACALABRUTINIB
     Indication: B-cell lymphoma
     Route: 048
  2. DOXYCYCLINE [Concomitant]
     Active Substance: DOXYCYCLINE
  3. LYRICA [Concomitant]
     Active Substance: PREGABALIN
  4. OMEPRAZOLE [Concomitant]
     Active Substance: OMEPRAZOLE
  5. MIDODRINE [Concomitant]
     Active Substance: MIDODRINE
  6. PREDNISONE [Concomitant]
     Active Substance: PREDNISONE
  7. TAMSULOSIN [Concomitant]
     Active Substance: TAMSULOSIN
  8. TYLENOL [Concomitant]
     Active Substance: ACETAMINOPHEN

REACTIONS (1)
  - Cataract [Unknown]
